FAERS Safety Report 7831023-8 (Version None)
Quarter: 2011Q4

REPORT INFORMATION
  Report Type: 
  Country: None (occurrence: None)
  Receive Date: 20111021
  Receipt Date: 20111018
  Transmission Date: 20120403
  Serious: Yes (Other)
  Sender: FDA-Public Use
  Company Number: JP-PFIZER INC-2011250928

PATIENT
  Age: 56 Year
  Sex: Female

DRUGS (10)
  1. ARTANE [Suspect]
     Dosage: 1 MG, 1X/DAY
  2. MENEST [Concomitant]
     Dosage: 100 MG, 3X/DAY
  3. SYMMETREL [Concomitant]
     Dosage: 100 MG, 2X/DAY
  4. MAGMITT [Concomitant]
     Dosage: 500 MG, 3X/DAY
  5. MOTILIUM [Concomitant]
     Dosage: 10 MG, 2X/DAY
  6. KENTAN [Concomitant]
     Dosage: 60 MG, 3X/DAY
  7. PRAMIPEXOLE DIHYDROCHLORIDE [Concomitant]
     Dosage: 1 MG, 3X/DAY
  8. MUCOSTA [Concomitant]
     Dosage: 1 DF, 3X/DAY
  9. LYRICA [Suspect]
     Dosage: 75 MG, 2X/DAY
     Route: 048
     Dates: start: 20110916
  10. VOLTAREN [Concomitant]
     Dosage: 50 MG

REACTIONS (1)
  - HEARING IMPAIRED [None]
